FAERS Safety Report 5579689-X (Version None)
Quarter: 2008Q1

REPORT INFORMATION
  Report Type: 
  Country: None (occurrence: None)
  Receive Date: 20080102
  Receipt Date: 20071207
  Transmission Date: 20080703
  Serious: No
  Sender: FDA-Public Use
  Company Number: US-BOEHRINGER INGELHEIM PHARMACEUTICALS, INC.-2007-BP-23378BP

PATIENT
  Sex: Male

DRUGS (10)
  1. FLOMAX [Suspect]
     Indication: BENIGN PROSTATIC HYPERPLASIA
     Route: 048
     Dates: end: 20070701
  2. FLOMAX [Suspect]
     Indication: URINE FLOW DECREASED
  3. FLOMAX [Suspect]
     Indication: URINARY HESITATION
  4. AVODART [Concomitant]
  5. ALPRAZOLAM [Concomitant]
     Indication: SLEEP DISORDER
  6. MULTI-VITAMIN [Concomitant]
  7. ASCORBIC ACID [Concomitant]
  8. VITAMIN A [Concomitant]
  9. CALCIUM [Concomitant]
  10. VITAMIN D [Concomitant]

REACTIONS (1)
  - ERECTILE DYSFUNCTION [None]
